FAERS Safety Report 20545101 (Version 1)
Quarter: 2022Q1

REPORT INFORMATION
  Report Type: Spontaneous
  Country: US (occurrence: US)
  Receive Date: 20220303
  Receipt Date: 20220303
  Transmission Date: 20220423
  Serious: No
  Sender: FDA-Public Use
  Company Number: US-ALLERGAN-2112202US

PATIENT
  Age: 65 Year
  Sex: Female

DRUGS (28)
  1. RESTASIS [Suspect]
     Active Substance: CYCLOSPORINE
     Indication: Dry eye
     Dosage: ACTUAL: ONE DROP IN EACH EYE DAILY
     Dates: start: 20210304, end: 20210318
  2. LATANOPROST [Concomitant]
     Active Substance: LATANOPROST
     Dosage: 2 GTT, QHS
     Route: 047
  3. ACETYLCARNITINE [Concomitant]
     Active Substance: ACETYLCARNITINE
  4. Allergy force [Concomitant]
     Indication: Nutritional supplementation
  5. ARMOUR THYROID [Concomitant]
     Active Substance: THYROID, PORCINE
     Indication: Hypothyroidism
  6. Ascorbate calcium combo pill [Concomitant]
  7. Better cholesterol supplement [Concomitant]
  8. COQ10                              /00517201/ [Concomitant]
  9. Doctor Fuhrman immune biotech [Concomitant]
  10. FLAXSEED [Concomitant]
     Active Substance: FLAX SEED
  11. Iodine Kelp [Concomitant]
  12. LOSARTAN [Concomitant]
     Active Substance: LOSARTAN
  13. LOVAZA [Concomitant]
     Active Substance: OMEGA-3-ACID ETHYL ESTERS
  14. MAGNESIUM CITRATE [Concomitant]
     Active Substance: MAGNESIUM CITRATE
  15. METOPROLOL [Concomitant]
     Active Substance: METOPROLOL
     Indication: Hypertension
  16. MULTIVITAMIN                       /00097801/ [Concomitant]
  17. NETTLE [Concomitant]
     Active Substance: URTICA DIOICA POLLEN
  18. NITROSTAT [Concomitant]
     Active Substance: NITROGLYCERIN
     Indication: Angina pectoris
  19. OMEPRAZOLE [Concomitant]
     Active Substance: OMEPRAZOLE
     Indication: Gastrooesophageal reflux disease
  20. PHOSPHATIDYL SERINE [Concomitant]
     Active Substance: PHOSPHATIDYL SERINE
  21. PREGNENOLONE [Concomitant]
     Active Substance: PREGNENOLONE
  22. PROBIOTIC                          /06395501/ [Concomitant]
  23. NIACIN [Concomitant]
     Active Substance: NIACIN
  24. VITAMIN B12                        /00056201/ [Concomitant]
  25. VITAMIN C                          /00008001/ [Concomitant]
  26. VITAMIN D3 [Concomitant]
     Active Substance: CHOLECALCIFEROL
  27. VITAMIN E                          /00110501/ [Concomitant]
  28. VITAMIN K2                         /00357701/ [Concomitant]

REACTIONS (8)
  - Heart rate increased [Recovering/Resolving]
  - Throat tightness [Recovering/Resolving]
  - Oropharyngeal pain [Recovering/Resolving]
  - Inappropriate schedule of product administration [Unknown]
  - Burning sensation [Recovering/Resolving]
  - Dyspnoea exertional [Recovering/Resolving]
  - Dizziness [Recovering/Resolving]
  - Hypersensitivity [Recovering/Resolving]

NARRATIVE: CASE EVENT DATE: 20210301
